FAERS Safety Report 5836871-1 (Version None)
Quarter: 2008Q3

REPORT INFORMATION
  Report Type: 
  Country: None (occurrence: None)
  Receive Date: 20080806
  Receipt Date: 20080730
  Transmission Date: 20090109
  Serious: Yes (Hospitalization)
  Sender: FDA-Public Use
  Company Number: APP200800704

PATIENT
  Age: 53 Year
  Sex: Male

DRUGS (2)
  1. HEPARIN SODIUM INJECTION [Suspect]
     Indication: HAEMODIALYSIS
     Dosage: 2000 USP UNITS, ONCE, INTRAVENOUS
     Route: 042
     Dates: start: 20080729, end: 20080729
  2. HEPARIN SODIUM INJECTION [Suspect]

REACTIONS (3)
  - DYSPHONIA [None]
  - MUSCLE TIGHTNESS [None]
  - RESPIRATORY DISTRESS [None]
